FAERS Safety Report 5210042-4 (Version None)
Quarter: 2006Q4

REPORT INFORMATION
  Report Type: 
  Country: None (occurrence: None)
  Receive Date: 20061127
  Receipt Date: 20060327
  Transmission Date: 20070319
  Serious: Yes (Other)
  Sender: FDA-Public Use
  Company Number: 2006BH006618

PATIENT
  Age: 60 Year
  Sex: Male

DRUGS (10)
  1. DIANEAL [Suspect]
     Indication: RENAL FAILURE CHRONIC
     Dosage: 2 L; 2X A DAY; IP
     Route: 033
     Dates: start: 20050223
  2. TOPROL-XL [Concomitant]
  3. PLAVIX [Concomitant]
  4. ASPIRIN [Concomitant]
  5. LASIX [Concomitant]
  6. LIPITOR [Concomitant]
  7. EPOGEN [Concomitant]
  8. DIATX [Concomitant]
  9. LISINOPRIL [Concomitant]
  10. NIFEDIPINE [Concomitant]

REACTIONS (1)
  - PERITONITIS [None]
